FAERS Safety Report 6611267-3 (Version None)
Quarter: 2010Q1

REPORT INFORMATION
  Report Type: 
  Country: None (occurrence: None)
  Receive Date: 20100301
  Receipt Date: 20100301
  Transmission Date: 20100710
  Serious: Yes (Other)
  Sender: FDA-Public Use
  Company Number: None

PATIENT
  Sex: Female
  Weight: 72.5755 kg

DRUGS (1)
  1. YASMIN [Suspect]
     Indication: OVARIAN CYST
     Dosage: 1 X A DAY PO, APPROX 3 OR 4 YEARS
     Route: 048

REACTIONS (2)
  - CHOLECYSTECTOMY [None]
  - FOOD INTOLERANCE [None]
